FAERS Safety Report 24635973 (Version 1)
Quarter: 2024Q4

REPORT INFORMATION
  Report Type: Spontaneous
  Country: US (occurrence: US)
  Receive Date: 20241119
  Receipt Date: 20241119
  Transmission Date: 20250114
  Serious: No
  Sender: CATALYST PHARMA
  Company Number: US-CATALYST PHARMACEUTICALS-US-CATA-24-01212

PATIENT
  Age: 2 Year
  Sex: Male
  Weight: 12.599 kg

DRUGS (5)
  1. AGAMREE [Suspect]
     Active Substance: VAMOROLONE
     Indication: Duchenne muscular dystrophy
     Dosage: 0.6 ML DAILY
     Route: 048
     Dates: start: 20240410, end: 2024
  2. AGAMREE [Suspect]
     Active Substance: VAMOROLONE
     Dosage: 1.2 ML DAILY
     Route: 048
     Dates: start: 20241019
  3. CHILDREN^S MULTIVITAMIN [Concomitant]
     Indication: Product used for unknown indication
     Dosage: 1 TABLET DAILY
     Route: 065
  4. CHILDRENS MOTRIN [Concomitant]
     Active Substance: IBUPROFEN
     Indication: Product used for unknown indication
     Dosage: AS NEEDED
     Route: 065
  5. CHILDRENS TYLENOL [Concomitant]
     Active Substance: ACETAMINOPHEN
     Indication: Product used for unknown indication
     Dosage: AS NEEDED
     Route: 065

REACTIONS (2)
  - Stubbornness [Not Recovered/Not Resolved]
  - Abnormal behaviour [Not Recovered/Not Resolved]

NARRATIVE: CASE EVENT DATE: 20240801
